FAERS Safety Report 10077307 (Version 2)
Quarter: 2014Q2

REPORT INFORMATION
  Report Type: Spontaneous
  Country: US (occurrence: US)
  Receive Date: 20140414
  Receipt Date: 20140528
  Transmission Date: 20141212
  Serious: Yes (Hospitalization, Other)
  Sender: FDA-Public Use
  Company Number: US-B.I. PHARMACEUTICALS,INC./RIDGEFIELD-2014-BI-16145BP

PATIENT
  Age: 76 Year
  Sex: Male
  Weight: 78.47 kg

DRUGS (9)
  1. PRADAXA [Suspect]
     Indication: ATRIAL FIBRILLATION
     Dosage: 300 MG
     Route: 048
     Dates: end: 20111010
  2. ASPIRIN [Suspect]
     Indication: PRODUCT USED FOR UNKNOWN INDICATION
     Dosage: 81 MG
     Route: 048
     Dates: end: 20111010
  3. PRILOSEC [Concomitant]
     Dosage: 20 MG
     Route: 048
  4. TRAMADOL [Concomitant]
     Indication: PAIN
     Dosage: 100 MG
     Route: 048
  5. SINEMET [Concomitant]
     Dosage: 4 ANZ
     Route: 048
  6. COZAAR [Concomitant]
     Dosage: 50 MG
     Route: 048
  7. MIRAPEX [Concomitant]
     Dosage: 2 ANZ
     Route: 048
  8. MIRALAX [Concomitant]
     Indication: CONSTIPATION
     Route: 048
  9. PRAVASTATIN [Concomitant]
     Dosage: 20 MG
     Route: 048
     Dates: end: 20111010

REACTIONS (10)
  - Gastrointestinal haemorrhage [Unknown]
  - Haemorrhagic anaemia [Unknown]
  - Renal failure acute [Unknown]
  - Hypertension [Unknown]
  - Acute myocardial infarction [Unknown]
  - Coagulopathy [Unknown]
  - Shock haemorrhagic [Recovered/Resolved]
  - Cardiogenic shock [Recovered/Resolved]
  - Cerebrovascular accident [Unknown]
  - Contusion [Unknown]
